FAERS Safety Report 9556499 (Version 1)
Quarter: 2013Q3

REPORT INFORMATION
  Report Type: Spontaneous
  Country: US (occurrence: US)
  Receive Date: 20130926
  Receipt Date: 20130926
  Transmission Date: 20140515
  Serious: No
  Sender: FDA-Public Use
  Company Number: US-PFIZER INC-2013275314

PATIENT
  Age: 62 Year
  Sex: Male
  Weight: 50.79 kg

DRUGS (2)
  1. LYRICA [Suspect]
     Indication: NEURALGIA
     Dosage: 150 MG, DAILY
     Dates: start: 201303
  2. LYRICA [Suspect]
     Indication: FIBROMYALGIA

REACTIONS (1)
  - Drug ineffective [Unknown]
